FAERS Safety Report 10047733 (Version 1)
Quarter: 2014Q1

REPORT INFORMATION
  Report Type: Spontaneous
  Country: US (occurrence: None)
  Receive Date: 20140328
  Receipt Date: 20140328
  Transmission Date: 20141002
  Serious: Yes (Other)
  Sender: FDA-Public Use
  Company Number: DL2014-0276

PATIENT
  Age: 34 Year
  Sex: Female

DRUGS (2)
  1. MIFEPRISTONE TABLETS, 200 MG (DANCO LABS) [Suspect]
     Indication: ABORTION INDUCED
     Route: 048
     Dates: start: 20131211
  2. MISOPROSTOL [Suspect]
     Route: 002
     Dates: start: 20131212

REACTIONS (4)
  - Abortion incomplete [None]
  - Haemorrhage [None]
  - Dizziness [None]
  - Anaemia [None]
